FAERS Safety Report 11451075 (Version 19)
Quarter: 2020Q2

REPORT INFORMATION
  Report Type: Report from Study
  Country: DE (occurrence: DE)
  Receive Date: 20150903
  Receipt Date: 20200604
  Transmission Date: 20200713
  Serious: Yes (Hospitalization)
  Sender: FDA-Public Use
  Company Number: DE-ROCHE-1629120

PATIENT
  Age: 50 Year
  Sex: Female
  Weight: 82 kg

DRUGS (15)
  1. ROACTEMRA [Suspect]
     Active Substance: TOCILIZUMAB
     Indication: RHEUMATOID ARTHRITIS
     Route: 058
     Dates: start: 20150619, end: 20190614
  2. DOXYCYCLIN [DOXYCYCLINE] [Suspect]
     Active Substance: DOXYCYCLINE
     Indication: DERMATITIS
  3. CORTISONE [Concomitant]
     Active Substance: CORTISONE
     Indication: RHEUMATOID ARTHRITIS
     Route: 065
  4. CORTISONE [Concomitant]
     Active Substance: CORTISONE
     Route: 065
  5. OMEP [OMEPRAZOLE] [Concomitant]
     Route: 065
  6. PREGABALIN. [Concomitant]
     Active Substance: PREGABALIN
     Route: 065
  7. ROACTEMRA [Suspect]
     Active Substance: TOCILIZUMAB
     Route: 058
  8. ROACTEMRA [Suspect]
     Active Substance: TOCILIZUMAB
     Route: 058
     Dates: start: 20171110
  9. FOLIC ACID. [Concomitant]
     Active Substance: FOLIC ACID
  10. LEVODOPA [Concomitant]
     Active Substance: LEVODOPA
     Dosage: 25 MG IN THE EVENING, 50 MG AT NIGHT
     Route: 065
  11. DOXYCYCLIN [DOXYCYCLINE] [Suspect]
     Active Substance: DOXYCYCLINE
     Indication: BIRTH MARK
     Route: 065
  12. METOPROLOL. [Concomitant]
     Active Substance: METOPROLOL
     Route: 065
  13. TORASEMIDE [Concomitant]
     Active Substance: TORSEMIDE
  14. VIGANTOLETTEN [Concomitant]
     Active Substance: CHOLECALCIFEROL
  15. LEVODOPA [Concomitant]
     Active Substance: LEVODOPA
     Dosage: 1 EVENING, 2 AT NIGHT
     Route: 065

REACTIONS (19)
  - Bronchitis [Unknown]
  - Rheumatoid lung [Unknown]
  - Impaired healing [Recovered/Resolved]
  - Vitamin D deficiency [Unknown]
  - Vomiting [Recovered/Resolved]
  - Wound haemorrhage [Unknown]
  - Tooth disorder [Unknown]
  - Dermatitis [Recovered/Resolved]
  - Rib fracture [Unknown]
  - Cough [Unknown]
  - Rheumatoid arthritis [Recovered/Resolved]
  - Contusion [Recovered/Resolved]
  - Dyspnoea [Unknown]
  - Inappropriate schedule of product administration [Unknown]
  - Fluid retention [Recovered/Resolved]
  - Pain [Unknown]
  - Musculoskeletal stiffness [Unknown]
  - Polyneuropathy [Recovering/Resolving]
  - Weight decreased [Recovered/Resolved]

NARRATIVE: CASE EVENT DATE: 20150619
